FAERS Safety Report 7148593 (Version 7)
Quarter: 2012Q4

REPORT INFORMATION
  Report Type: Report from Study
  Country: US (occurrence: US)
  Receive Date: 20091014
  Receipt Date: 20120907
  Transmission Date: 20130627
  Serious: Yes (Death, Life-Threatening, Hospitalization)
  Sender: FDA-Public Use
  Company Number: US-ROCHE-662414

PATIENT
  Age: 60 Year
  Sex: Male
  Weight: 85.31 kg

DRUGS (11)
  1. AVASTIN [Suspect]
     Indication: NON-SMALL CELL LUNG CANCER
     Dosage: 15 MG/M2, Q21D
     Route: 042
     Dates: start: 20090904, end: 20090904
  2. PEMETREXED DISODIUM [Suspect]
     Indication: NON-SMALL CELL LUNG CANCER
     Dosage: 500 MG/M2, Q21D
     Route: 042
     Dates: start: 20090904, end: 20090904
  3. CARBOPLATIN [Suspect]
     Indication: NON-SMALL CELL LUNG CANCER
     Dosage: 6 DF, Q21D
     Route: 042
     Dates: start: 20090904, end: 20090904
  4. NORCO [Concomitant]
     Indication: PRODUCT USED FOR UNKNOWN INDICATION
     Dosage: UNK
     Route: 065
  5. MEGESTROL ACETATE [Concomitant]
     Indication: PRODUCT USED FOR UNKNOWN INDICATION
     Dosage: UNK
     Route: 065
  6. DURAGESIC [Concomitant]
     Indication: PRODUCT USED FOR UNKNOWN INDICATION
     Dosage: UNK
     Route: 065
  7. FLUCONAZOLE [Concomitant]
     Route: 065
     Dates: start: 20090901, end: 20090907
  8. DEXAMETHASONE [Concomitant]
     Route: 065
     Dates: start: 20090824, end: 20090911
  9. VITAMIN B12 [Concomitant]
     Route: 065
     Dates: start: 20090824, end: 20090911
  10. NEXIUM [Concomitant]
  11. FOLIC ACID [Concomitant]
     Route: 065
     Dates: start: 20090824, end: 20090911

REACTIONS (6)
  - Respiratory failure [Fatal]
  - Renal failure acute [Recovered/Resolved]
  - Sepsis [Not Recovered/Not Resolved]
  - Peritonitis [Not Recovered/Not Resolved]
  - Leukopenia [Recovered/Resolved]
  - Thrombocytopenia [Recovered/Resolved]
